FAERS Safety Report 4680238-9 (Version None)
Quarter: 2005Q2

REPORT INFORMATION
  Report Type: 
  Country: None (occurrence: None)
  Receive Date: 20050531
  Receipt Date: 20050511
  Transmission Date: 20051028
  Serious: Yes (Hospitalization)
  Sender: FDA-Public Use
  Company Number: MPS1-10365

PATIENT
  Age: 31 Year
  Sex: Female
  Weight: 35 kg

DRUGS (1)
  1. ALDURAZYME [Suspect]
     Indication: MUCOPOLYSACCHARIDOSIS I
     Dosage: 3500 UNITS QWK IV
     Route: 042
     Dates: start: 20031007

REACTIONS (4)
  - CARDIO-RESPIRATORY ARREST [None]
  - CONVULSION [None]
  - POOR VENOUS ACCESS [None]
  - PROCEDURAL COMPLICATION [None]
